FAERS Safety Report 8093216-7 (Version None)
Quarter: 2012Q1

REPORT INFORMATION
  Report Type: 
  Country: None (occurrence: None)
  Receive Date: 20120128
  Receipt Date: 20110906
  Transmission Date: 20120608
  Serious: No
  Sender: FDA-Public Use
  Company Number: US-ABBOTT-11P-163-0696073-00

PATIENT
  Sex: Female
  Weight: 90.8 kg

DRUGS (4)
  1. HUMIRA [Suspect]
     Indication: RHEUMATOID ARTHRITIS
     Dates: start: 20100914
  2. FOLIC ACID [Concomitant]
     Indication: VITAMIN SUPPLEMENTATION
     Dosage: DAILY
  3. METHOTREXATE [Concomitant]
     Indication: RHEUMATOID ARTHRITIS
     Dosage: 6 PILLS WEEKLY
  4. PREDNISONE TAB [Concomitant]
     Indication: RHEUMATOID ARTHRITIS
     Dates: end: 20101201

REACTIONS (12)
  - FLATULENCE [None]
  - BLISTER [None]
  - VIRAL INFECTION [None]
  - CONSTIPATION [None]
  - ABDOMINAL PAIN [None]
  - SKIN LESION [None]
  - BLOOD CHOLESTEROL INCREASED [None]
  - HAEMATOCHEZIA [None]
  - GAIT DISTURBANCE [None]
  - BACTERIAL INFECTION [None]
  - HYPERTENSION [None]
  - ANORECTAL DISCOMFORT [None]
